FAERS Safety Report 5131754-7 (Version None)
Quarter: 2006Q4

REPORT INFORMATION
  Report Type: 
  Country: None (occurrence: None)
  Receive Date: 20061020
  Receipt Date: 20060816
  Transmission Date: 20070319
  Serious: Yes (Other)
  Sender: FDA-Public Use
  Company Number: US-MERCK-0608USA03849

PATIENT
  Age: 65 Year
  Sex: Female

DRUGS (2)
  1. ZOCOR [Suspect]
     Indication: BLOOD CHOLESTEROL INCREASED
     Route: 048
     Dates: start: 20000101, end: 20060101
  2. TOPROL-XL [Concomitant]
     Route: 065

REACTIONS (3)
  - BLINDNESS TRANSIENT [None]
  - CONVULSION [None]
  - MUSCULAR WEAKNESS [None]
